FAERS Safety Report 5417557-4 (Version None)
Quarter: 2007Q3

REPORT INFORMATION
  Report Type: 
  Country: None (occurrence: None)
  Receive Date: 20070718
  Receipt Date: 20060630
  Transmission Date: 20080115
  Serious: Yes (Death, Other)
  Sender: FDA-Public Use
  Company Number: 2005124401

PATIENT
  Age: 73 Year
  Sex: Female
  Weight: 74.8435 kg

DRUGS (6)
  1. CELEBREX [Suspect]
     Indication: ARTHRITIS
     Dosage: 400 MG (200 MG, 2 IN 1 D);
     Dates: start: 20030904
  2. CELEBREX [Suspect]
     Indication: PAIN
     Dosage: 400 MG (200 MG, 2 IN 1 D);
     Dates: start: 20030904
  3. MAXZIDE [Concomitant]
  4. PHENTERMINE [Concomitant]
  5. ESTRADIOL [Concomitant]
  6. MEDROXYPROGESTERONE [Concomitant]

REACTIONS (1)
  - MYOCARDIAL INFARCTION [None]
